FAERS Safety Report 5526946-9 (Version None)
Quarter: 2007Q4

REPORT INFORMATION
  Report Type: 
  Country: None (occurrence: None)
  Receive Date: 20071127
  Receipt Date: 20071115
  Transmission Date: 20080405
  Serious: Yes (Other)
  Sender: FDA-Public Use
  Company Number: US-PFIZER INC-2007096967

PATIENT
  Sex: Female
  Weight: 49.9 kg

DRUGS (8)
  1. RELPAX [Suspect]
     Indication: MIGRAINE
  2. ANTIBIOTICS [Suspect]
     Indication: SINUSITIS
  3. ADDERALL 10 [Concomitant]
  4. MECLIZINE [Concomitant]
  5. CYTOMEL [Concomitant]
  6. CETIRIZINE/PSEUDOEPHEDRINE [Concomitant]
  7. NASACORT [Concomitant]
  8. CLOBETASOL PROPIONATE [Concomitant]
     Indication: ECZEMA

REACTIONS (5)
  - CLOSTRIDIAL INFECTION [None]
  - DIZZINESS [None]
  - SINUSITIS [None]
  - THROAT TIGHTNESS [None]
  - WEIGHT INCREASED [None]
